FAERS Safety Report 7939450-5 (Version None)
Quarter: 2011Q4

REPORT INFORMATION
  Report Type: 
  Country: None (occurrence: None)
  Receive Date: 20111125
  Receipt Date: 20111116
  Transmission Date: 20120403
  Serious: Yes (Hospitalization)
  Sender: FDA-Public Use
  Company Number: GB-ROCHE-1014095

PATIENT
  Sex: Female

DRUGS (7)
  1. FLUOXETINE [Concomitant]
  2. DICLOFENAC SODIUM [Concomitant]
  3. METHOTREXATE [Concomitant]
  4. BENDROFLUAZIDE [Concomitant]
  5. FOLIC ACID [Concomitant]
  6. MABTHERA [Suspect]
     Indication: PRODUCT USED FOR UNKNOWN INDICATION
     Dates: start: 20100623
  7. AMLODIPINE [Concomitant]

REACTIONS (2)
  - ARTHRALGIA [None]
  - JOINT SWELLING [None]
